FAERS Safety Report 18589697 (Version 1)
Quarter: 2020Q4

REPORT INFORMATION
  Report Type: Spontaneous
  Country: FR (occurrence: FR)
  Receive Date: 20201208
  Receipt Date: 20201208
  Transmission Date: 20210114
  Serious: Yes (Hospitalization)
  Sender: FDA-Public Use
  Company Number: NVSC2020FR319273

PATIENT
  Age: 35 Year
  Sex: Female

DRUGS (4)
  1. ACUPAN [Suspect]
     Active Substance: NEFOPAM HYDROCHLORIDE
     Indication: METABOLIC SURGERY
     Dosage: 20 MG,1 (EN SI BESOIN)
     Route: 042
     Dates: start: 20201026, end: 20201110
  2. PERFALGAN [Suspect]
     Active Substance: ACETAMINOPHEN
     Indication: METABOLIC SURGERY
     Dosage: 3000 MG,QD
     Route: 042
     Dates: start: 20201026, end: 20201110
  3. SPASFON [PHLOROGLUCINOL;TRIMETHYLPHLOROGLUCINOL] [Suspect]
     Active Substance: PHLOROGLUCINOL\1,3,5-TRIMETHOXYBENZENE
     Indication: METABOLIC SURGERY
     Dosage: 240 MG,QD
     Route: 042
     Dates: start: 20201026, end: 20201110
  4. ZOPHREN [Suspect]
     Active Substance: ONDANSETRON
     Indication: METABOLIC SURGERY
     Dosage: 4 MG, PRN
     Route: 048
     Dates: start: 20201026, end: 20201110

REACTIONS (1)
  - Erythema multiforme [Recovering/Resolving]

NARRATIVE: CASE EVENT DATE: 20201101
